FAERS Safety Report 4711506-X (Version None)
Quarter: 2005Q3

REPORT INFORMATION
  Report Type: 
  Country: None (occurrence: None)
  Receive Date: 20050711
  Receipt Date: 20050711
  Transmission Date: 20060218
  Serious: Yes (Hospitalization)
  Sender: FDA-Public Use
  Company Number: None

PATIENT
  Age: 66 Year
  Sex: Male
  Weight: 94.8018 kg

DRUGS (6)
  1. DOCETAXEL   150MG [Suspect]
     Indication: NON-SMALL CELL LUNG CANCER STAGE IIIB
     Dosage: 150MG   Q 21 DAYS   INTRAVENOU
     Route: 042
     Dates: start: 20050606, end: 20050628
  2. PROTONIX [Concomitant]
  3. MONOPRIL [Concomitant]
  4. SYNTHROID [Concomitant]
  5. XANAX [Concomitant]
  6. AMBIEN [Concomitant]

REACTIONS (2)
  - COLITIS ISCHAEMIC [None]
  - RECTAL HAEMORRHAGE [None]
